FAERS Safety Report 8116226-X (Version None)
Quarter: 2012Q1

REPORT INFORMATION
  Report Type: 
  Country: None (occurrence: None)
  Receive Date: 20120206
  Receipt Date: 20120125
  Transmission Date: 20120608
  Serious: Yes (Hospitalization)
  Sender: FDA-Public Use
  Company Number: JP-NOVOPROD-342398

PATIENT
  Age: 84 Year
  Sex: Male
  Weight: 42 kg

DRUGS (16)
  1. APIDRA [Suspect]
     Indication: TYPE 2 DIABETES MELLITUS
     Dosage: 12 UT, QD
     Route: 058
     Dates: start: 20110221
  2. ASPIRIN [Concomitant]
     Dosage: 100 MG, QD
     Route: 048
  3. PLETAL [Concomitant]
     Dosage: 200 MG, QD
     Route: 048
  4. AMARYL [Concomitant]
     Dosage: 1 MG, QD
     Route: 048
  5. NOVOLIN R [Suspect]
     Dosage: 120 U, QD
     Route: 058
  6. NOVORAPID 30 MIX CHU FLEXPEN [Suspect]
     Indication: TYPE 2 DIABETES MELLITUS
     Dosage: 8 U, QD
     Route: 058
     Dates: start: 20100218, end: 20110221
  7. NICORANTA [Concomitant]
     Dosage: 15 MG, QD
     Route: 048
  8. MUCOSTA [Concomitant]
     Dosage: 300 MG, QD
     Route: 048
  9. DIART [Concomitant]
     Dosage: 30 MG, QD
     Route: 048
  10. NOVOLIN R [Suspect]
     Indication: TYPE 2 DIABETES MELLITUS
     Dosage: 10 UT, QD
     Route: 058
     Dates: start: 20100325, end: 20110221
  11. MILLIS [Concomitant]
     Dosage: 5 MG, QD
     Route: 048
  12. MAGMITT [Concomitant]
     Dosage: 990 MG, QD
     Route: 048
  13. SITAGLIPTIN PHOSPHATE [Concomitant]
     Dosage: 25 MG, QD
     Route: 048
  14. HUMALOG [Suspect]
     Indication: TYPE 2 DIABETES MELLITUS
     Dosage: 20 UT, QD
     Route: 058
     Dates: start: 20100317, end: 20110221
  15. ALLOPURINOL [Concomitant]
     Dosage: 100 MG, QD
     Route: 048
  16. LIPITOR [Concomitant]
     Dosage: 5 MG, QD
     Route: 048

REACTIONS (5)
  - DIABETES MELLITUS INADEQUATE CONTROL [None]
  - HYPERGLYCAEMIA [None]
  - HYPOGLYCAEMIA [None]
  - ANTI-INSULIN ANTIBODY POSITIVE [None]
  - ANTI-INSULIN ANTIBODY INCREASED [None]
